FAERS Safety Report 8245755-3 (Version None)
Quarter: 2012Q1

REPORT INFORMATION
  Report Type: 
  Country: None (occurrence: None)
  Receive Date: 20120330
  Receipt Date: 20120326
  Transmission Date: 20120608
  Serious: No
  Sender: FDA-Public Use
  Company Number: US-BIOGENIDEC-2012BI010630

PATIENT
  Age: 38 Year
  Sex: Female

DRUGS (2)
  1. TYSABRI [Suspect]
     Indication: RELAPSING-REMITTING MULTIPLE SCLEROSIS
     Route: 042
     Dates: start: 20100422, end: 20120101
  2. ABILIFY [Concomitant]
     Indication: DEPRESSION

REACTIONS (5)
  - FATIGUE [None]
  - HYPOAESTHESIA [None]
  - FOOD INTOLERANCE [None]
  - HYPERSOMNIA [None]
  - DECREASED APPETITE [None]
